FAERS Safety Report 6192547-5 (Version None)
Quarter: 2009Q2

REPORT INFORMATION
  Report Type: 
  Country: None (occurrence: None)
  Receive Date: 20090518
  Receipt Date: 20090507
  Transmission Date: 20091009
  Serious: Yes (Hospitalization, Other)
  Sender: FDA-Public Use
  Company Number: US-AMGEN-QUU344334

PATIENT
  Sex: Female

DRUGS (23)
  1. ENBREL [Suspect]
     Indication: PSORIATIC ARTHROPATHY
     Route: 058
     Dates: start: 20070202
  2. ENBREL [Suspect]
     Indication: PSORIASIS
  3. NABUMETONE [Suspect]
  4. INDOCIN [Suspect]
  5. PREDNISONE [Suspect]
  6. ALLOPURINOL [Concomitant]
  7. DARVOCET-N 100 [Concomitant]
  8. TRAMADOL HCL [Concomitant]
  9. LISINOPRIL [Concomitant]
  10. CALCIUM [Concomitant]
  11. MULTIPLE VITAMINS [Concomitant]
  12. PYRIDOXINE [Concomitant]
  13. DILAUDID [Concomitant]
  14. TYLENOL [Concomitant]
  15. ZOFRAN [Concomitant]
  16. IRON SULFATETHIAMIN COMPOUND TAB [Concomitant]
  17. ASCORBIC ACID [Concomitant]
  18. DOCUSATE [Concomitant]
  19. INSULIN [Concomitant]
  20. ALBUTEROL [Concomitant]
  21. METHOTREXATE [Concomitant]
  22. INVANZ [Concomitant]
  23. ENOXAPARIN SODIUM [Concomitant]

REACTIONS (21)
  - ABDOMINAL COMPARTMENT SYNDROME [None]
  - ACIDOSIS [None]
  - CHOLECYSTITIS [None]
  - CHOLELITHIASIS [None]
  - DIZZINESS [None]
  - GOUT [None]
  - HEPATOTOXICITY [None]
  - HYPOTENSION [None]
  - INJECTION SITE PAIN [None]
  - LEUKOCYTOSIS [None]
  - MALAISE [None]
  - NEPHROLITHIASIS [None]
  - PULMONARY TUBERCULOSIS [None]
  - PYELONEPHRITIS [None]
  - PYREXIA [None]
  - SEPTIC SHOCK [None]
  - SMALL INTESTINAL OBSTRUCTION [None]
  - SMALL INTESTINAL PERFORATION [None]
  - TACHYCARDIA [None]
  - URINARY TRACT INFECTION [None]
  - WEIGHT DECREASED [None]
